FAERS Safety Report 9516483 (Version 1)
Quarter: 2013Q1

REPORT INFORMATION
  Report Type: Spontaneous
  Country: US (occurrence: None)
  Receive Date: 20130305
  Receipt Date: 20130305
  Transmission Date: 20140127
  Serious: Yes (Other)
  Sender: FDA-Public Use
  Company Number: 163-21880-12080592

PATIENT
  Age: 55 Year
  Sex: Female

DRUGS (11)
  1. REVLIMID [Suspect]
     Indication: PLASMA CELL MYELOMA
     Dosage: 10 MG, 21 IN 21 D, PO
     Route: 048
     Dates: start: 20120329
  2. GABAPENTIN (GABAPENTIN) [Concomitant]
  3. IMODIUM A-D (LOPERAMIDE HYDROCHLORIDE) [Concomitant]
  4. ASPIRIN (ACETYLSALICYLIC ACID) [Concomitant]
  5. VITAMIN E (TOCOPHEROL) [Concomitant]
  6. VITAMIN C [Concomitant]
  7. PERCOCET (OXYCOCET) [Concomitant]
  8. MULTI-VITAMIN [Concomitant]
  9. ATIVAN (LORAZEPAM) [Concomitant]
  10. LOMOTIL (LOMOTIL) [Concomitant]
  11. CIPRO (UNKNOWN) [Concomitant]

REACTIONS (3)
  - Abdominal pain upper [None]
  - Muscle spasms [None]
  - Diarrhoea [None]
